FAERS Safety Report 5567499-9 (Version None)
Quarter: 2007Q4

REPORT INFORMATION
  Report Type: 
  Country: None (occurrence: None)
  Receive Date: 20071219
  Receipt Date: 20071207
  Transmission Date: 20080405
  Serious: Yes (Other)
  Sender: FDA-Public Use
  Company Number: US-PFIZER INC-2007103454

PATIENT
  Sex: Male
  Weight: 102.1 kg

DRUGS (4)
  1. ALPRAZOLAM [Suspect]
     Indication: PANIC DISORDER
  2. LITHIUM CARBONATE [Suspect]
     Indication: PANIC DISORDER
  3. ANTIHYPERTENSIVES [Concomitant]
  4. DIURETICS [Concomitant]

REACTIONS (3)
  - DRUG LEVEL INCREASED [None]
  - MEMORY IMPAIRMENT [None]
  - RENAL DISORDER [None]
